FAERS Safety Report 17029673 (Version 3)
Quarter: 2019Q4

REPORT INFORMATION
  Report Type: Report from Study
  Country: JP (occurrence: JP)
  Receive Date: 20191114
  Receipt Date: 20191129
  Transmission Date: 20200122
  Serious: Yes (Hospitalization)
  Sender: FDA-Public Use
  Company Number: JP-ROCHE-2464858

PATIENT
  Age: 67 Year
  Sex: Female
  Weight: 47 kg

DRUGS (7)
  1. PEGFILGRASTIM [Suspect]
     Active Substance: PEGFILGRASTIM
     Route: 058
     Dates: start: 20191019
  2. PACLITAXEL. [Suspect]
     Active Substance: PACLITAXEL
     Indication: TRIPLE NEGATIVE BREAST CANCER
     Dosage: MOST RECENT DOSE: 13/SEP/2019
     Route: 042
     Dates: start: 20190614
  3. EPIRUBICIN [Suspect]
     Active Substance: EPIRUBICIN
     Indication: TRIPLE NEGATIVE BREAST CANCER
     Dosage: ON 18/OCT/2019, DATE OF MOST RECENT DOSE OF EPIRUBICIN PRIOR TO AE ONSET
     Route: 042
     Dates: start: 20190920
  4. PEGFILGRASTIM [Suspect]
     Active Substance: PEGFILGRASTIM
     Route: 058
     Dates: start: 20191005
  5. ATEZOLIZUMAB. [Suspect]
     Active Substance: ATEZOLIZUMAB
     Indication: TRIPLE NEGATIVE BREAST CANCER
     Dosage: ON 18/OCT/2019, DATE OF MOST RECENT DOSE (840 MG) OF ATEZOLIZUMAB PRIOR TO AE ONSET?ATEZOLIZUMAB MA
     Route: 042
     Dates: start: 20190614
  6. PEGFILGRASTIM [Suspect]
     Active Substance: PEGFILGRASTIM
     Indication: TRIPLE NEGATIVE BREAST CANCER
     Route: 058
     Dates: start: 20190921
  7. CYCLOPHOSPHAMIDE. [Suspect]
     Active Substance: CYCLOPHOSPHAMIDE
     Indication: TRIPLE NEGATIVE BREAST CANCER
     Dosage: 18/OCT/2019, DATE OF MOST RECENT DOSE OF CYCLOPHOSPHAMIDE PRIOR TO AE ONSET
     Route: 042
     Dates: start: 20190920

REACTIONS (2)
  - Vasculitis [Not Recovered/Not Resolved]
  - Muscular weakness [Not Recovered/Not Resolved]

NARRATIVE: CASE EVENT DATE: 20191020
